FAERS Safety Report 12312651 (Version 1)
Quarter: 2016Q2

REPORT INFORMATION
  Report Type: Spontaneous
  Country: BR (occurrence: BR)
  Receive Date: 20160428
  Receipt Date: 20160428
  Transmission Date: 20160815
  Serious: Yes (Other)
  Sender: FDA-Public Use
  Company Number: BR-AMGEN-BRASP2016052849

PATIENT
  Age: 62 Year
  Sex: Female
  Weight: 46 kg

DRUGS (9)
  1. OMEPRAZOLE. [Concomitant]
     Active Substance: OMEPRAZOLE
     Dosage: 1 ^CP^, IN FASTING
  2. CHLOROQUINE. [Concomitant]
     Active Substance: CHLOROQUINE
     Dosage: 1 ^CP^, DAILY
  3. SINVASTATINA [Concomitant]
     Active Substance: SIMVASTATIN
     Dosage: 2 ^CP^ AT NIGHT
  4. SPIRONOLACTONE. [Concomitant]
     Active Substance: SPIRONOLACTONE
     Dosage: 1 ^CP^, DAILY
  5. AAS [Concomitant]
     Active Substance: ASPIRIN
     Dosage: ^1^ AFTER LUNCH
  6. ENALAPRIL [Concomitant]
     Active Substance: ENALAPRIL
     Dosage: 1 ^CP^, DAILY
  7. ENBREL [Suspect]
     Active Substance: ETANERCEPT
     Indication: RHEUMATOID ARTHRITIS
     Dosage: 50 MG, QWK
     Route: 058
     Dates: start: 2014
  8. CARVEDILOL. [Concomitant]
     Active Substance: CARVEDILOL
     Dosage: 65 MG, EVERY 12 HOURS
  9. METHOTREXATE [Concomitant]
     Active Substance: METHOTREXATE
     Dosage: 10 ^CP^, EVERY 8 DAYS

REACTIONS (1)
  - Spinal disorder [Not Recovered/Not Resolved]
